FAERS Safety Report 8521710-0 (Version None)
Quarter: 2012Q3

REPORT INFORMATION
  Report Type: 
  Country: None (occurrence: None)
  Receive Date: 20120706
  Receipt Date: 20120626
  Transmission Date: 20120928
  Serious: Yes (Other)
  Sender: FDA-Public Use
  Company Number: USA/USA/12/0024872

PATIENT
  Age: 63 Year
  Sex: Male

DRUGS (2)
  1. GALANTAMINE HYDROBROMIDE [Suspect]
     Indication: PRODUCT USED FOR UNKNOWN INDICATION
     Dosage: UNKNOWN, UNKNOWN
  2. DONEPEZIL HYDRCHLORIDE [Suspect]
     Indication: PRODUCT USED FOR UNKNOWN INDICATION
     Dosage: UNKNOWN, UNKNOWN

REACTIONS (3)
  - CONDITION AGGRAVATED [None]
  - POST-TRAUMATIC STRESS DISORDER [None]
  - RESPIRATORY DISTRESS [None]
